FAERS Safety Report 10267050 (Version 1)
Quarter: 2014Q2

REPORT INFORMATION
  Report Type: Spontaneous
  Country: US (occurrence: US)
  Receive Date: 20140630
  Receipt Date: 20140630
  Transmission Date: 20141212
  Serious: No
  Sender: FDA-Public Use
  Company Number: US-ASTRAZENECA-2014SE45145

PATIENT
  Sex: Female

DRUGS (1)
  1. ENTOCORT EC [Suspect]
     Indication: COLITIS
     Dosage: UNK UNK
     Route: 048

REACTIONS (3)
  - Adverse event [Unknown]
  - Mobility decreased [Unknown]
  - Intentional product misuse [Unknown]
